FAERS Safety Report 8739192 (Version 2)
Quarter: 2013Q4

REPORT INFORMATION
  Report Type: Spontaneous
  Country: US (occurrence: US)
  Receive Date: 20120823
  Receipt Date: 20131101
  Transmission Date: 20140711
  Serious: No
  Sender: FDA-Public Use
  Company Number: US-009507513-1208USA000037

PATIENT
  Age: 25 Year
  Sex: Female

DRUGS (1)
  1. IMPLANON [Suspect]
     Dosage: UNK
     Dates: start: 20110314

REACTIONS (5)
  - Gallbladder operation [Unknown]
  - Amenorrhoea [Unknown]
  - Weight increased [Unknown]
  - Abdominal pain [Unknown]
  - Mental status changes [Unknown]
